FAERS Safety Report 7220373-4 (Version None)
Quarter: 2011Q1

REPORT INFORMATION
  Report Type: 
  Country: None (occurrence: None)
  Receive Date: 20110111
  Receipt Date: 20101228
  Transmission Date: 20110831
  Serious: No
  Sender: FDA-Public Use
  Company Number: US-B.I. PHARMACEUTICALS,INC./RIDGEFIELD-2011-BP-00331BP

PATIENT
  Sex: Male

DRUGS (5)
  1. LISINOPRIL [Concomitant]
     Indication: HYPERTENSION
     Dosage: 200 MG
     Route: 048
     Dates: start: 20080101
  2. METOPROLOL TARTRATE [Concomitant]
     Indication: HYPERTENSION
     Dosage: 50 MG
     Route: 048
     Dates: start: 20080101
  3. PRADAXA [Suspect]
     Indication: ATRIAL FIBRILLATION
     Dosage: 300 MG
     Route: 048
     Dates: start: 20101223
  4. AMIODARONE [Concomitant]
     Indication: CARDIAC DISORDER
     Dosage: 500 MG
     Route: 048
     Dates: start: 20080101
  5. CLONIDINE [Concomitant]
     Indication: HYPERTENSION
     Dosage: 0.01 MG
     Route: 048
     Dates: start: 20080101

REACTIONS (2)
  - HEADACHE [None]
  - HEART RATE IRREGULAR [None]
